FAERS Safety Report 23324701 (Version 21)
Quarter: 2024Q4

REPORT INFORMATION
  Report Type: Report from Study
  Country: AT (occurrence: AT)
  Receive Date: 20231221
  Receipt Date: 20241211
  Transmission Date: 20250114
  Serious: Yes (Hospitalization)
  Sender: ABBVIE
  Company Number: AT-ABBVIE-5524693

PATIENT
  Age: 60 Year
  Sex: Male
  Weight: 79 kg

DRUGS (75)
  1. VENETOCLAX [Suspect]
     Active Substance: VENETOCLAX
     Indication: Acute myeloid leukaemia
     Dosage: FREQUENCY TEXT: RAMP UP DOSE, FREQUENCY TEXT: CUMULATIVE AE / SAE
     Route: 048
     Dates: start: 20231101, end: 20231120
  2. VENETOCLAX [Suspect]
     Active Substance: VENETOCLAX
     Indication: Acute myeloid leukaemia
     Dosage: FREQUENCY TEXT: CUMULATIVE AE / SAE
     Route: 048
     Dates: start: 20231031, end: 20231031
  3. VENETOCLAX [Suspect]
     Active Substance: VENETOCLAX
     Indication: Acute myeloid leukaemia
     Dosage: FREQUENCY TEXT: CUMULATIVE AE / SAE
     Route: 048
     Dates: start: 20231204, end: 20231210
  4. VENETOCLAX [Suspect]
     Active Substance: VENETOCLAX
     Indication: Acute myeloid leukaemia
     Dosage: FREQUENCY TEXT: CUMULATIVE AE / SAE
     Route: 048
     Dates: start: 20240115, end: 20240128
  5. VENETOCLAX [Suspect]
     Active Substance: VENETOCLAX
     Indication: Acute myeloid leukaemia
     Dosage: FREQUENCY TEXT: CUMULATIVE AE / SAE
     Route: 048
     Dates: start: 20240212, end: 20240225
  6. VENETOCLAX [Suspect]
     Active Substance: VENETOCLAX
     Indication: Acute myeloid leukaemia
     Dosage: FREQUENCY TEXT: CUMULATIVE AE / SAE
     Route: 048
     Dates: start: 20240312, end: 20240320
  7. VENETOCLAX [Suspect]
     Active Substance: VENETOCLAX
     Indication: Acute myeloid leukaemia
     Dosage: FREQUENCY TEXT: CUMULATIVE AE / SAE
     Route: 048
     Dates: start: 20240422, end: 20240506
  8. VENETOCLAX [Suspect]
     Active Substance: VENETOCLAX
     Indication: Acute myeloid leukaemia
     Dosage: FREQUENCY TEXT: OTHER
     Route: 048
     Dates: start: 20240521, end: 20240603
  9. VENETOCLAX [Suspect]
     Active Substance: VENETOCLAX
     Indication: Acute myeloid leukaemia
     Dosage: FREQUENCY TEXT: OTHER
     Route: 048
     Dates: start: 20240708, end: 20240721
  10. VENETOCLAX [Suspect]
     Active Substance: VENETOCLAX
     Indication: Acute myeloid leukaemia
     Dosage: FREQUENCY TEXT: OTHER
     Route: 048
     Dates: start: 20240909, end: 20240922
  11. VENETOCLAX [Suspect]
     Active Substance: VENETOCLAX
     Indication: Acute myeloid leukaemia
     Dosage: FREQUENCY TEXT: OTHER
     Route: 048
     Dates: start: 20240805, end: 20240818
  12. VENETOCLAX [Suspect]
     Active Substance: VENETOCLAX
     Indication: Acute myeloid leukaemia
     Route: 048
     Dates: start: 20241015, end: 20241029
  13. VENETOCLAX [Suspect]
     Active Substance: VENETOCLAX
     Indication: Acute myeloid leukaemia
     Route: 048
     Dates: start: 20240626, end: 20240707
  14. VENETOCLAX [Suspect]
     Active Substance: VENETOCLAX
     Indication: Acute myeloid leukaemia
     Dosage: 0 MG FREQUENCY TEXT: OTHER
     Route: 048
     Dates: start: 20240604, end: 20240625
  15. VENETOCLAX [Suspect]
     Active Substance: VENETOCLAX
     Indication: Acute myeloid leukaemia
     Dosage: 0 MG FREQUENCY TEXT: OTHER
     Route: 048
     Dates: start: 20240507, end: 20240521
  16. VENETOCLAX [Suspect]
     Active Substance: VENETOCLAX
     Indication: Acute myeloid leukaemia
     Dosage: 0 MG FREQUENCY TEXT: OTHER
     Route: 048
     Dates: start: 20240321, end: 20240422
  17. VENETOCLAX [Suspect]
     Active Substance: VENETOCLAX
     Indication: Acute myeloid leukaemia
     Dosage: 0 MG FREQUENCY TEXT : OTHER
     Route: 048
     Dates: start: 20240226, end: 20240311
  18. VENETOCLAX [Suspect]
     Active Substance: VENETOCLAX
     Indication: Acute myeloid leukaemia
     Dosage: 0 MG FREQUENCY TEXT : OTHER
     Route: 048
     Dates: start: 20240129, end: 20240211
  19. VENETOCLAX [Suspect]
     Active Substance: VENETOCLAX
     Indication: Acute myeloid leukaemia
     Dosage: 0 MG FREQUENCY TEXT : OTHER
     Route: 048
     Dates: start: 20231121, end: 20231203
  20. BISOPROLOL FUMARATE [Concomitant]
     Active Substance: BISOPROLOL FUMARATE
     Indication: Product used for unknown indication
     Route: 048
     Dates: start: 20220228
  21. EZEGELAN [Concomitant]
     Indication: Product used for unknown indication
     Route: 048
     Dates: start: 20230508
  22. LORAZEPAM [Concomitant]
     Active Substance: LORAZEPAM
     Indication: Product used for unknown indication
     Dosage: TIME INTERVAL: AS NECESSARY
     Dates: start: 20231030
  23. METOCLOPRAMIDE [Concomitant]
     Active Substance: METOCLOPRAMIDE
     Indication: Product used for unknown indication
     Dosage: TIME INTERVAL: AS NECESSARY
     Dates: start: 20231030
  24. METAMIZOL [Concomitant]
     Active Substance: METAMIZOLE SODIUM
     Indication: Product used for unknown indication
     Dosage: TIME INTERVAL: AS NECESSARY
     Dates: start: 20231030
  25. GLUCOPHAGE [Concomitant]
     Active Substance: METFORMIN HYDROCHLORIDE
     Indication: Product used for unknown indication
     Route: 048
     Dates: start: 20231030, end: 20231211
  26. GLUCOPHAGE [Concomitant]
     Active Substance: METFORMIN HYDROCHLORIDE
     Indication: Product used for unknown indication
     Route: 048
  27. ALLOPURINOL [Concomitant]
     Active Substance: ALLOPURINOL
     Indication: Product used for unknown indication
     Route: 048
     Dates: start: 20231109
  28. ONDANSETRON [Concomitant]
     Active Substance: ONDANSETRON
     Indication: Product used for unknown indication
     Dosage: TIME INTERVAL: AS NECESSARY
     Dates: start: 20231030
  29. CHOLECALCIFEROL [Concomitant]
     Active Substance: CHOLECALCIFEROL
     Indication: Product used for unknown indication
     Route: 048
     Dates: start: 20220101
  30. MAGNESIUM CARBONATE\MAGNESIUM OXIDE [Concomitant]
     Active Substance: MAGNESIUM CARBONATE\MAGNESIUM OXIDE
     Indication: Product used for unknown indication
     Route: 048
     Dates: start: 20220131
  31. INSPRA [Concomitant]
     Active Substance: EPLERENONE
     Indication: Product used for unknown indication
     Dates: start: 20230508
  32. SYMBICORT [Concomitant]
     Active Substance: BUDESONIDE\FORMOTEROL FUMARATE DIHYDRATE
     Indication: Product used for unknown indication
     Dosage: 875/125 MG
     Route: 048
     Dates: start: 20230508
  33. ASPIRIN [Concomitant]
     Active Substance: ASPIRIN
     Indication: Product used for unknown indication
     Route: 048
     Dates: start: 20240101
  34. NOVORAPID [Concomitant]
     Active Substance: INSULIN ASPART
     Indication: Product used for unknown indication
     Dosage: TIME INTERVAL: AS NECESSARY
     Route: 058
     Dates: start: 20231224
  35. SYMBICORT [Concomitant]
     Active Substance: BUDESONIDE\FORMOTEROL FUMARATE DIHYDRATE
     Indication: Product used for unknown indication
     Dosage: 875/125 MG
     Route: 048
  36. DICLOFENAC [Concomitant]
     Active Substance: DICLOFENAC
     Indication: Product used for unknown indication
     Dosage: TIME INTERVAL: AS NECESSARY: FREQUENCY TEXT: AS REQUIRED
     Route: 048
     Dates: start: 20240415, end: 20240430
  37. EPLERENONE [Concomitant]
     Active Substance: EPLERENONE
     Indication: Product used for unknown indication
     Route: 048
  38. AZACITIDINE [Concomitant]
     Active Substance: AZACITIDINE
     Indication: Product used for unknown indication
     Dosage: 148.74 MILLIGRAM?FREQUENCY TEXT: STANDARD DOSE
     Dates: start: 20240429, end: 20240430
  39. AZACITIDINE [Concomitant]
     Active Substance: AZACITIDINE
     Indication: Product used for unknown indication
     Dosage: FREQUENCY TEXT: OTHER
     Dates: start: 20231204, end: 20231210
  40. AZACITIDINE [Concomitant]
     Active Substance: AZACITIDINE
     Indication: Product used for unknown indication
     Dosage: 0 MILLIGRAM?FREQUENCY TEXT: CUMULATIVE AE/SAE
     Dates: start: 20240120, end: 20240121
  41. AZACITIDINE [Concomitant]
     Active Substance: AZACITIDINE
     Indication: Product used for unknown indication
     Dosage: FREQUENCY TEXT: STANDARD DOSE
     Dates: start: 20240219, end: 20240220
  42. AZACITIDINE [Concomitant]
     Active Substance: AZACITIDINE
     Indication: Product used for unknown indication
     Dosage: FREQUENCY TEXT: STANDARD DOSE
     Dates: start: 20231031, end: 20231106
  43. AZACITIDINE [Concomitant]
     Active Substance: AZACITIDINE
     Indication: Product used for unknown indication
     Dosage: FREQUENCY TEXT: STANDARD DOSE
     Dates: start: 20240212, end: 20240216
  44. AZACITIDINE [Concomitant]
     Active Substance: AZACITIDINE
     Indication: Product used for unknown indication
     Dosage: 0 MILLIGRAM?FREQUENCY TEXT: CUMULATIVE AE/SAE
     Dates: start: 20240217, end: 20240218
  45. AZACITIDINE [Concomitant]
     Active Substance: AZACITIDINE
     Indication: Product used for unknown indication
     Dosage: 0 MILLIGRAM?FREQUENCY TEXT: STANDARD DOSE
     Dates: start: 20240321, end: 20240422
  46. AZACITIDINE [Concomitant]
     Active Substance: AZACITIDINE
     Indication: Product used for unknown indication
     Dosage: FREQUENCY TEXT: CUMULATIVE AE/SAE
     Dates: start: 20240312, end: 20240315
  47. AZACITIDINE [Concomitant]
     Active Substance: AZACITIDINE
     Indication: Product used for unknown indication
     Dosage: FREQUENCY TEXT: CUMULATIVE AE/SAE
     Dates: start: 20240115, end: 20240119
  48. AZACITIDINE [Concomitant]
     Active Substance: AZACITIDINE
     Indication: Product used for unknown indication
     Dosage: 0 MILLIGRAM?FREQUENCY TEXT: STANDARD DOSE
     Dates: start: 20240221, end: 20240311
  49. AZACITIDINE [Concomitant]
     Active Substance: AZACITIDINE
     Indication: Product used for unknown indication
     Dosage: 148.74 MILLIGRAM?FREQUENCY TEXT: CUMULATIVE AE/SAE
     Dates: start: 20240422, end: 20240426
  50. AZACITIDINE [Concomitant]
     Active Substance: AZACITIDINE
     Indication: Product used for unknown indication
     Dosage: 0 MILLIGRAM?FREQUENCY TEXT: OTHER
     Dates: start: 20240501, end: 20240521
  51. AZACITIDINE [Concomitant]
     Active Substance: AZACITIDINE
     Indication: Product used for unknown indication
     Dosage: 0 MILLIGRAM?FREQUENCY TEXT: OTHER
     Dates: start: 20240124, end: 20240211
  52. AZACITIDINE [Concomitant]
     Active Substance: AZACITIDINE
     Indication: Product used for unknown indication
     Dosage: FREQUENCY TEXT: STANDARD DOSE
     Dates: start: 20240318, end: 20240320
  53. AZACITIDINE [Concomitant]
     Active Substance: AZACITIDINE
     Indication: Product used for unknown indication
     Dosage: 0 MILLIGRAM?FREQUENCY TEXT: STANDARD DOSE
     Dates: start: 20231107, end: 20231203
  54. AZACITIDINE [Concomitant]
     Active Substance: AZACITIDINE
     Indication: Product used for unknown indication
     Dosage: FREQUENCY TEXT: STANDARD DOSE
     Dates: start: 20240122, end: 20240123
  55. AZACITIDINE [Concomitant]
     Active Substance: AZACITIDINE
     Indication: Product used for unknown indication
     Dosage: 142.61 MILLIGRAM?FREQUENCY TEXT: NON HEMATOLOGIC AE/SAE
     Dates: start: 20240521, end: 20240529
  56. AZACITIDINE [Concomitant]
     Active Substance: AZACITIDINE
     Indication: Product used for unknown indication
     Dosage: 0 MILLIGRAM?FREQUENCY TEXT: STANDARD DOSING
     Dates: start: 20240530, end: 20240625
  57. AZACITIDINE [Concomitant]
     Active Substance: AZACITIDINE
     Indication: Product used for unknown indication
     Dosage: 0 MILLIGRAM?FREQUENCY TEXT: STANDARD DOSING
     Dates: start: 20240626, end: 20240707
  58. AZACITIDINE [Concomitant]
     Active Substance: AZACITIDINE
     Indication: Product used for unknown indication
     Dosage: FREQUENCY TEXT: STANDARD DOSING
     Dates: start: 20240708, end: 20240712
  59. AZACITIDINE [Concomitant]
     Active Substance: AZACITIDINE
     Indication: Product used for unknown indication
     Dosage: FREQUENCY TEXT: HEMATOLOGIC AE/SAE
     Dates: start: 20240805, end: 20240813
  60. AZACITIDINE [Concomitant]
     Active Substance: AZACITIDINE
     Indication: Product used for unknown indication
     Dosage: FREQUENCY TEXT: STANDARD DOSING
     Dates: start: 20240715, end: 20240716
  61. AZACITIDINE [Concomitant]
     Active Substance: AZACITIDINE
     Indication: Product used for unknown indication
     Dates: start: 20240909, end: 20240917
  62. AZACITIDINE [Concomitant]
     Active Substance: AZACITIDINE
     Indication: Product used for unknown indication
     Dosage: 003 MG
     Dates: start: 20241015, end: 20241021
  63. AROSUVA [Concomitant]
     Indication: Product used for unknown indication
     Route: 048
     Dates: start: 20230508
  64. MYCOSTATIN [Concomitant]
     Active Substance: NYSTATIN
     Indication: Product used for unknown indication
     Route: 048
     Dates: start: 20231031, end: 20231128
  65. ENALAPRIL [Concomitant]
     Active Substance: ENALAPRIL
     Indication: Product used for unknown indication
     Route: 048
     Dates: start: 20230508
  66. TAZOBACTAM [Concomitant]
     Active Substance: TAZOBACTAM
     Indication: Product used for unknown indication
     Route: 042
     Dates: start: 20231211, end: 20231219
  67. TAZOBACTAM [Concomitant]
     Active Substance: TAZOBACTAM
     Indication: Product used for unknown indication
     Route: 042
     Dates: start: 20231224, end: 20240104
  68. AMOXICILLIN\CLAVULANATE POTASSIUM [Concomitant]
     Active Substance: AMOXICILLIN\CLAVULANATE POTASSIUM
     Indication: Product used for unknown indication
     Dosage: 875/125 MG
     Route: 048
     Dates: start: 20231225, end: 20240109
  69. AMOXICILLIN\CLAVULANATE POTASSIUM [Concomitant]
     Active Substance: AMOXICILLIN\CLAVULANATE POTASSIUM
     Indication: Product used for unknown indication
     Route: 048
     Dates: start: 20230212
  70. AMOXICILLIN\CLAVULANATE POTASSIUM [Concomitant]
     Active Substance: AMOXICILLIN\CLAVULANATE POTASSIUM
     Indication: Product used for unknown indication
     Route: 048
  71. PIPERACILLIN [Concomitant]
     Active Substance: PIPERACILLIN
     Indication: Product used for unknown indication
     Route: 042
     Dates: start: 20231211, end: 20231219
  72. PIPERACILLIN [Concomitant]
     Active Substance: PIPERACILLIN
     Indication: Product used for unknown indication
     Route: 042
     Dates: start: 20231224, end: 20240104
  73. ALLOPURINOLO SAN [Concomitant]
     Indication: Product used for unknown indication
     Route: 048
  74. Enac [Concomitant]
     Indication: Product used for unknown indication
     Route: 048
  75. METFORMIN [Concomitant]
     Active Substance: METFORMIN HYDROCHLORIDE
     Indication: Product used for unknown indication
     Dosage: METFORMIN BLUE
     Route: 048
     Dates: start: 20231212

REACTIONS (19)
  - Alcohol poisoning [Recovered/Resolved]
  - Anaemia [Recovered/Resolved]
  - Anaemia [Recovered/Resolved]
  - Infection [Recovered/Resolved]
  - Thrombophlebitis [Recovered/Resolved]
  - Infection [Not Recovered/Not Resolved]
  - Thrombophlebitis [Recovering/Resolving]
  - Infection [Recovered/Resolved]
  - Sciatica [Not Recovered/Not Resolved]
  - Spinal pain [Unknown]
  - Contusion [Not Recovered/Not Resolved]
  - Infection [Recovered/Resolved]
  - Anaemia [Recovered/Resolved]
  - Fall [Recovered/Resolved]
  - Thrombocytopenia [Recovered/Resolved]
  - Thrombocytopenia [Unknown]
  - Wound [Recovered/Resolved]
  - Anaemia [Recovered/Resolved]
  - Neutropenia [Unknown]

NARRATIVE: CASE EVENT DATE: 20231128
